FAERS Safety Report 24136675 (Version 1)
Quarter: 2024Q3

REPORT INFORMATION
  Report Type: Spontaneous
  Country: CH (occurrence: CH)
  Receive Date: 20240725
  Receipt Date: 20240725
  Transmission Date: 20241017
  Serious: Yes (Other)
  Sender: MYLAN
  Company Number: None

PATIENT
  Age: 37 Year
  Sex: Female

DRUGS (4)
  1. PAROXETINE [Suspect]
     Active Substance: PAROXETINE
     Indication: Mixed anxiety and depressive disorder
     Dosage: 5 MILLIGRAM, QD
     Route: 065
  2. OXAZEPAM [Suspect]
     Active Substance: OXAZEPAM
     Indication: Product used for unknown indication
     Dosage: 15 MILLIGRAM (AS NECESSARY)
     Route: 065
  3. TRAZODONE [Suspect]
     Active Substance: TRAZODONE HYDROCHLORIDE
     Indication: Mixed anxiety and depressive disorder
     Dosage: 25 MILLIGRAM, QD
     Route: 065
  4. ALPRAZOLAM [Suspect]
     Active Substance: ALPRAZOLAM
     Indication: Product used for unknown indication
     Dosage: 0.25 MILLIGRAM, QD
     Route: 065
     Dates: end: 2023

REACTIONS (3)
  - Abortion spontaneous [Recovered/Resolved]
  - Libido disorder [Unknown]
  - Exposure during pregnancy [Recovered/Resolved]

NARRATIVE: CASE EVENT DATE: 20230401
